FAERS Safety Report 6557618-X (Version None)
Quarter: 2010Q1

REPORT INFORMATION
  Report Type: 
  Country: None (occurrence: None)
  Receive Date: 20100126
  Receipt Date: 20090827
  Transmission Date: 20100710
  Serious: Yes (Other)
  Sender: FDA-Public Use
  Company Number: LMI-2009-00226

PATIENT
  Sex: Male

DRUGS (3)
  1. DEFINITY [Suspect]
     Indication: FAMILIAL RISK FACTOR
     Dosage: 1 VIAL OF DEFINITY DILUTED OF 50 ML OF NS (25 ML), INTRAVENOUS
     Route: 042
     Dates: start: 20090817, end: 20090817
  2. DEFINITY [Suspect]
     Indication: STRESS ECHOCARDIOGRAM
     Dosage: 1 VIAL OF DEFINITY DILUTED OF 50 ML OF NS (25 ML), INTRAVENOUS
     Route: 042
     Dates: start: 20090817, end: 20090817
  3. .. [Concomitant]

REACTIONS (1)
  - HYPERSENSITIVITY [None]
